FAERS Safety Report 19140809 (Version 1)
Quarter: 2021Q2

REPORT INFORMATION
  Report Type: Report from Study
  Country: CN (occurrence: CN)
  Receive Date: 20210415
  Receipt Date: 20210415
  Transmission Date: 20210717
  Serious: Yes (Death)
  Sender: FDA-Public Use
  Company Number: CN-PFIZER INC-2021396151

PATIENT
  Age: 48 Year
  Sex: Male

DRUGS (12)
  1. METHOTREXATE. [Concomitant]
     Active Substance: METHOTREXATE
     Indication: PROPHYLAXIS
     Dosage: 15 MG/M2, ON DAY +1 POST?TRANSPLANTATION
  2. SULFAMETHOXAZOLE [Concomitant]
     Active Substance: SULFAMETHOXAZOLE
     Indication: ANTIBIOTIC PROPHYLAXIS
  3. ACYCLOVIR [ACICLOVIR] [Concomitant]
     Active Substance: ACYCLOVIR
     Indication: ANTIVIRAL PROPHYLAXIS
     Dosage: FROM DAY 1 UNTIL DAY 180
  4. GLOBULIN [Concomitant]
     Indication: PROPHYLAXIS
     Dosage: ON DAYS +1, +11, +21 AND +31
  5. CYCLOPHOSPHAMIDE. [Suspect]
     Active Substance: CYCLOPHOSPHAMIDE
     Indication: PLASMA CELL MYELOMA
     Dosage: 1.8 G/M2, (OVER 1 HOUR FOR 2 DAYS (DAYS ?5,?4)
     Route: 042
  6. METHOTREXATE. [Concomitant]
     Active Substance: METHOTREXATE
     Dosage: 10 MG/M2, ON DAYS +3 AND +6 POST?TRANSPLANTATION
  7. CYTARABINE. [Suspect]
     Active Substance: CYTARABINE
     Indication: PLASMA CELL MYELOMA
     Dosage: 2 G/M2, ON DAY ?9
  8. BUSULFAN. [Suspect]
     Active Substance: BUSULFAN
     Indication: PLASMA CELL MYELOMA
     Dosage: 12 MG/KG, (IN FOUR DIVIDED DOSES DAILY FOR 3 DAYS (DAYS ?8, ?7, ?6)
     Route: 048
  9. HYDROXYUREA. [Suspect]
     Active Substance: HYDROXYUREA
     Indication: PLASMA CELL MYELOMA
     Dosage: 40 MG/KG, 2X/DAY, (DAY ?10)
  10. SEMUSTINE [Suspect]
     Active Substance: SEMUSTINE
     Indication: PLASMA CELL MYELOMA
     Dosage: 250 MG/M2, (ON DAY ?3)
  11. FLUCONAZOLE. [Concomitant]
     Active Substance: FLUCONAZOLE
     Indication: ANTIFUNGAL PROPHYLAXIS
     Dosage: UNKNOWN
  12. CYCLOSPORIN A [Concomitant]
     Active Substance: CYCLOSPORINE
     Indication: PROPHYLAXIS
     Dosage: 1.25 MG/KG, FROM DAY ?1 TO 6 MONTHS POST?TRANSPLANTATION

REACTIONS (1)
  - Multiple organ dysfunction syndrome [Fatal]
